FAERS Safety Report 9029479 (Version 2)
Quarter: 2013Q1

REPORT INFORMATION
  Report Type: Spontaneous
  Country: CN (occurrence: CN)
  Receive Date: 20130124
  Receipt Date: 20130201
  Transmission Date: 20140127
  Serious: Yes (Hospitalization, Other)
  Sender: FDA-Public Use
  Company Number: CN-NAPPMUNDI-GBR-2013-0012888

PATIENT
  Age: 55 Year
  Sex: Male

DRUGS (5)
  1. MORPHINE SULFATE CR TABLET [Suspect]
     Indication: CANCER PAIN
     Dosage: 10 MG, QID
     Route: 048
  2. MORPHINE SULFATE CR TABLET [Suspect]
     Dosage: 30 MG, DAILY
     Route: 048
  3. MORPHINE SULFATE CR TABLET [Suspect]
     Dosage: 10 MG, Q12H
     Route: 048
  4. OXYCODONE HCL PR TABLET [Suspect]
     Indication: CANCER PAIN
     Dosage: 40 MG, DAILY
     Route: 048
  5. OXYCODONE HCL PR TABLET [Suspect]
     Dosage: 10 MG, Q12H
     Route: 048

REACTIONS (2)
  - Somnolence [Recovered/Resolved]
  - Drug ineffective [Recovered/Resolved]
